FAERS Safety Report 7138779-0 (Version None)
Quarter: 2010Q4

REPORT INFORMATION
  Report Type: 
  Country: None (occurrence: None)
  Receive Date: 20101206
  Receipt Date: 20101115
  Transmission Date: 20110411
  Serious: No
  Sender: FDA-Public Use
  Company Number: US-B.I. PHARMACEUTICALS,INC./RIDGEFIELD-2010-BP-12820BP

PATIENT
  Sex: Female

DRUGS (10)
  1. AGGRENOX [Suspect]
     Indication: TRANSIENT ISCHAEMIC ATTACK
     Route: 048
     Dates: start: 20100701, end: 20100701
  2. SYNTHROID [Concomitant]
     Indication: HYPOTHYROIDISM
  3. EVISTA [Concomitant]
     Indication: HORMONE THERAPY
  4. EVISTA [Concomitant]
     Indication: BLOOD CHOLESTEROL INCREASED
  5. NORVASC [Concomitant]
     Indication: HYPERTENSION
  6. PLAVIX [Concomitant]
     Indication: TRANSIENT ISCHAEMIC ATTACK
  7. PEPCID [Concomitant]
     Indication: BARRETT'S OESOPHAGUS
  8. VITAMIN D [Concomitant]
     Indication: PROPHYLAXIS
  9. LOVAZA [Concomitant]
     Indication: PROPHYLAXIS
  10. MULTI-VITAMIN [Concomitant]
     Indication: PROPHYLAXIS

REACTIONS (2)
  - ADVERSE REACTION [None]
  - GASTROINTESTINAL DISORDER [None]
